FAERS Safety Report 16734623 (Version 1)
Quarter: 2019Q3

REPORT INFORMATION
  Report Type: Spontaneous
  Country: US (occurrence: US)
  Receive Date: 20190708
  Receipt Date: 20190708
  Transmission Date: 20191005
  Serious: No
  Sender: FDA-Public Use
  Company Number: None

PATIENT
  Age: 53 Year
  Sex: Male

DRUGS (4)
  1. ALLOPURINOL. [Concomitant]
     Active Substance: ALLOPURINOL
  2. DOFETILIDE. [Concomitant]
     Active Substance: DOFETILIDE
  3. INLYTA [Suspect]
     Active Substance: AXITINIB
     Dates: start: 20190112, end: 20190626
  4. METROPROLOL SUCCINATE [Concomitant]

REACTIONS (1)
  - Disease progression [None]

NARRATIVE: CASE EVENT DATE: 20190708
